FAERS Safety Report 5797268-6 (Version None)
Quarter: 2008Q2

REPORT INFORMATION
  Report Type: 
  Country: None (occurrence: None)
  Receive Date: 20080627
  Receipt Date: 20080612
  Transmission Date: 20081010
  Serious: Yes (Death, Hospitalization)
  Sender: FDA-Public Use
  Company Number: 2008AL006832

PATIENT
  Age: 85 Year
  Sex: Male
  Weight: 56.246 kg

DRUGS (5)
  1. DIGOXIN TABLETS               (AMIDE) [Suspect]
     Indication: ATRIAL FIBRILLATION
     Dosage: 0.125MG,QD,PO
     Route: 048
     Dates: start: 20070425, end: 20080425
  2. SYNTHROID [Concomitant]
  3. TEGRETOL [Concomitant]
  4. ASPIRIN [Concomitant]
  5. LOPRESSOR [Concomitant]

REACTIONS (6)
  - BILE DUCT OBSTRUCTION [None]
  - CEREBRAL HAEMORRHAGE [None]
  - HEAD INJURY [None]
  - HYPOTENSION [None]
  - LOSS OF CONSCIOUSNESS [None]
  - MYOCARDIAL INFARCTION [None]
